FAERS Safety Report 10076795 (Version 2)
Quarter: 2014Q4

REPORT INFORMATION
  Report Type: Report from Study
  Country: CA (occurrence: CA)
  Receive Date: 20140414
  Receipt Date: 20141201
  Transmission Date: 20150528
  Serious: Yes (Other)
  Sender: FDA-Public Use
  Company Number: CA-BRISTOL-MYERS SQUIBB COMPANY-20611067

PATIENT
  Age: 73 Year
  Sex: Female

DRUGS (11)
  1. PREDNISONE. [Concomitant]
     Active Substance: PREDNISONE
  2. AMLODIPINE [Concomitant]
     Active Substance: AMLODIPINE BESYLATE
  3. PLAQUENIL [Concomitant]
     Active Substance: HYDROXYCHLOROQUINE SULFATE
  4. APO-HYDRO [Concomitant]
     Active Substance: HYDROCHLOROTHIAZIDE
  5. LETROZOLE. [Concomitant]
     Active Substance: LETROZOLE
     Dosage: PMS LETROZOLE
  6. CELEBREX [Concomitant]
     Active Substance: CELECOXIB
  7. SYNTHROID [Concomitant]
     Active Substance: LEVOTHYROXINE SODIUM
  8. ORENCIA [Suspect]
     Active Substance: ABATACEPT
     Indication: RHEUMATOID ARTHRITIS
     Dosage: INTERRUPTED ON 24MAR2014
     Route: 042
     Dates: start: 20130131, end: 201411
  9. EFFEXOR [Concomitant]
     Active Substance: VENLAFAXINE HYDROCHLORIDE
  10. CARBOCAL [Concomitant]
     Active Substance: CALCIUM CARBONATE
  11. AREDIA [Concomitant]
     Active Substance: PAMIDRONATE DISODIUM
     Indication: METASTASES TO BONE

REACTIONS (1)
  - Blindness [Not Recovered/Not Resolved]
